FAERS Safety Report 8069511-4 (Version None)
Quarter: 2012Q1

REPORT INFORMATION
  Report Type: 
  Country: None (occurrence: None)
  Receive Date: 20120119
  Receipt Date: 20120106
  Transmission Date: 20120608
  Serious: Yes (Other)
  Sender: FDA-Public Use
  Company Number: JPI-P-018451

PATIENT
  Age: 63 Year
  Sex: Female

DRUGS (4)
  1. XYREM [Suspect]
     Indication: CATAPLEXY
     Dosage: 6 GM (3 GM, 2 IN 1 D), ORAL
     Route: 048
     Dates: start: 20090326
  2. BENAZEPRIL HYDROCHLORIDE [Concomitant]
  3. LEVOTHYROXINE SODIUM [Concomitant]
  4. CELECOXIB [Concomitant]

REACTIONS (2)
  - WALDENSTROM'S MACROGLOBULINAEMIA [None]
  - HIP ARTHROPLASTY [None]
